FAERS Safety Report 8961695 (Version 1)
Quarter: 2012Q4

REPORT INFORMATION
  Report Type: 
  Country: IT (occurrence: IT)
  Receive Date: 20121213
  Receipt Date: 20121213
  Transmission Date: 20130627
  Serious: Yes (Other)
  Sender: FDA-Public Use
  Company Number: PHHY2012IT114047

PATIENT
  Age: 31 Year
  Sex: Female

DRUGS (3)
  1. GILENYA [Suspect]
     Dosage: 0.5 mg, daily
     Route: 048
     Dates: start: 20120514
  2. GILENYA [Suspect]
     Dosage: 0.5 mg, daily
     Route: 048
     Dates: start: 20120726, end: 20121012
  3. TOPAMAX [Concomitant]
     Dosage: 50 mg, UNK
     Route: 048

REACTIONS (3)
  - Myopathy [Recovering/Resolving]
  - Nuclear magnetic resonance imaging abnormal [Recovering/Resolving]
  - Inappropriate schedule of drug administration [Unknown]
